FAERS Safety Report 12475738 (Version 2)
Quarter: 2016Q3

REPORT INFORMATION
  Report Type: Spontaneous
  Country: US (occurrence: US)
  Receive Date: 20160617
  Receipt Date: 20160804
  Transmission Date: 20161109
  Serious: Yes (Other)
  Sender: FDA-Public Use
  Company Number: US-BAYER-2016-118569

PATIENT
  Age: 16 Year
  Sex: Female
  Weight: 46.26 kg

DRUGS (2)
  1. SKYLA [Suspect]
     Active Substance: LEVONORGESTREL
     Indication: CONTRACEPTION
     Dosage: 14 MCG/24HR, CONT
     Route: 015
     Dates: start: 20150128, end: 20160608
  2. SKYLA [Suspect]
     Active Substance: LEVONORGESTREL
     Indication: CONTRACEPTION
     Dosage: 14 MCG/24HR, CONT
     Route: 015
     Dates: start: 20160608, end: 20160620

REACTIONS (9)
  - Embedded device [Recovered/Resolved]
  - Procedural pain [Recovered/Resolved]
  - Pelvic pain [Recovered/Resolved]
  - Uterine scar [Recovered/Resolved]
  - Abdominal pain lower [Recovered/Resolved]
  - Abdominal pain lower [Recovered/Resolved]
  - Pain [Recovered/Resolved]
  - Genital haemorrhage [Recovered/Resolved]
  - Device difficult to use [Recovered/Resolved]

NARRATIVE: CASE EVENT DATE: 20150131
